FAERS Safety Report 10538949 (Version 1)
Quarter: 2014Q4

REPORT INFORMATION
  Report Type: Spontaneous
  Country: GB (occurrence: GB)
  Receive Date: 20141023
  Receipt Date: 20141023
  Transmission Date: 20150529
  Serious: Yes (Other)
  Sender: FDA-Public Use
  Company Number: GB-GLAXOSMITHKLINE-GB2014006693

PATIENT

DRUGS (7)
  1. WATER FOR INJECTION [Concomitant]
     Active Substance: WATER
     Dates: start: 20140926, end: 20140927
  2. MUPIROCIN. [Suspect]
     Active Substance: MUPIROCIN
  3. OXYBUTYNIN [Concomitant]
     Active Substance: OXYBUTYNIN
     Dosage: UNK
     Dates: start: 20140617, end: 20140715
  4. HYDROCORTISONE. [Concomitant]
     Active Substance: HYDROCORTISONE
     Dates: start: 20140704, end: 20140801
  5. FLUCLOXACILLIN [Concomitant]
     Active Substance: FLUCLOXACILLIN
     Dosage: UNK
     Dates: start: 20140718, end: 20140725
  6. FLUCLOXACILLIN [Concomitant]
     Active Substance: FLUCLOXACILLIN
     Dosage: UNK
     Dates: start: 20140926, end: 20141003
  7. OXYBUTYNIN [Concomitant]
     Active Substance: OXYBUTYNIN
     Dosage: UNK
     Dates: start: 20140818, end: 20140915

REACTIONS (1)
  - Chemical injury [Recovered/Resolved]

NARRATIVE: CASE EVENT DATE: 20140926
